FAERS Safety Report 4874441-2 (Version None)
Quarter: 2005Q4

REPORT INFORMATION
  Report Type: 
  Country: None (occurrence: None)
  Receive Date: 20051201
  Receipt Date: 20050817
  Transmission Date: 20060501
  Serious: No
  Sender: FDA-Public Use
  Company Number: 2005PV001070

PATIENT
  Age: 56 Year
  Sex: Male
  Weight: 99.7913 kg

DRUGS (19)
  1. BYETTA [Suspect]
     Indication: DIABETES MELLITUS NON-INSULIN-DEPENDENT
     Dosage: 5 MCG; BID; SC
     Route: 058
     Dates: start: 20050701, end: 20050818
  2. GLYBURIDE [Concomitant]
  3. FUROSEMIDE [Concomitant]
  4. DIGOXIN [Concomitant]
  5. METFORMIN HYDROCHLORIDE [Concomitant]
  6. PREVACID [Concomitant]
  7. SULAR [Concomitant]
  8. DIOVAN [Concomitant]
  9. NIRTO-DUR [Concomitant]
  10. NITROQUICK [Concomitant]
  11. POTASSIUM CHLORIDE [Concomitant]
  12. DEPO-TESTOSTERONE [Concomitant]
  13. FISH OIL [Concomitant]
  14. CIALIS [Concomitant]
  15. CORAL CALCIUM [Concomitant]
  16. LEVAQUIN [Concomitant]
  17. COUMADIN [Concomitant]
  18. ZANTAC [Concomitant]
  19. INDERAL [Concomitant]

REACTIONS (9)
  - ASTHENIA [None]
  - BLOOD GLUCOSE INCREASED [None]
  - DIZZINESS [None]
  - DUODENAL ULCER [None]
  - FATIGUE [None]
  - GASTRITIS [None]
  - INTERNATIONAL NORMALISED RATIO INCREASED [None]
  - RECTAL HAEMORRHAGE [None]
  - VERTIGO [None]
